FAERS Safety Report 5569980-5 (Version None)
Quarter: 2007Q4

REPORT INFORMATION
  Report Type: 
  Country: None (occurrence: None)
  Receive Date: 20071220
  Receipt Date: 20071211
  Transmission Date: 20080405
  Serious: Yes (Other)
  Sender: FDA-Public Use
  Company Number: US-PFIZER INC-2006029573

PATIENT
  Sex: Female
  Weight: 106.1 kg

DRUGS (4)
  1. BEXTRA [Suspect]
     Indication: ILL-DEFINED DISORDER
  2. VICODIN [Concomitant]
     Route: 048
  3. NITROSTAT [Concomitant]
  4. VIOXX [Concomitant]

REACTIONS (1)
  - STEVENS-JOHNSON SYNDROME [None]
